FAERS Safety Report 10270406 (Version 1)
Quarter: 2014Q3

REPORT INFORMATION
  Report Type: Spontaneous
  Country: GB (occurrence: GB)
  Receive Date: 20140701
  Receipt Date: 20140701
  Transmission Date: 20150326
  Serious: Yes (Hospitalization)
  Sender: FDA-Public Use
  Company Number: GB-TEVA-489226ISR

PATIENT
  Sex: Female

DRUGS (2)
  1. RAMIPRIL. [Suspect]
     Active Substance: RAMIPRIL
  2. VALSARTAN. [Concomitant]
     Active Substance: VALSARTAN

REACTIONS (8)
  - Mouth swelling [Unknown]
  - Swollen tongue [Unknown]
  - Ear discomfort [Unknown]
  - Troponin increased [Unknown]
  - Malaise [Unknown]
  - Alopecia [Recovered/Resolved]
  - Nasal dryness [Unknown]
  - Chest pain [Unknown]
